FAERS Safety Report 4323575-X (Version None)
Quarter: 2004Q1

REPORT INFORMATION
  Report Type: 
  Country: None (occurrence: None)
  Receive Date: 20040323
  Receipt Date: 20040226
  Transmission Date: 20041129
  Serious: No
  Sender: FDA-Public Use
  Company Number: USA040259737

PATIENT
  Age: 37 Year
  Sex: Male
  Weight: 86 kg

DRUGS (5)
  1. CIALIS [Suspect]
     Dosage: 10 MG
     Dates: start: 20040205, end: 20040205
  2. AVALIDE [Concomitant]
  3. LIPITOR [Concomitant]
  4. ALLEGRA [Concomitant]
  5. ASPIRIN [Concomitant]

REACTIONS (1)
  - HEART RATE INCREASED [None]
